FAERS Safety Report 5532050-6 (Version None)
Quarter: 2007Q4

REPORT INFORMATION
  Report Type: 
  Country: None (occurrence: None)
  Receive Date: 20071203
  Receipt Date: 20071127
  Transmission Date: 20080405
  Serious: Yes (Life-Threatening, Hospitalization)
  Sender: FDA-Public Use
  Company Number: B0488967A

PATIENT
  Age: 61 Year
  Sex: Female
  Weight: 60 kg

DRUGS (6)
  1. ARIXTRA [Suspect]
     Indication: ACUTE CORONARY SYNDROME
     Dosage: 7.5MG PER DAY
     Route: 058
     Dates: start: 20070919, end: 20070919
  2. ASPEGIC 1000 [Concomitant]
     Indication: ACUTE CORONARY SYNDROME
     Route: 048
     Dates: start: 20070919, end: 20070919
  3. RISORDAN [Concomitant]
     Route: 048
     Dates: start: 20070919, end: 20070919
  4. LEVOTHYROX [Concomitant]
     Indication: HYPOTHYROIDISM
     Dosage: 50MG PER DAY
     Route: 048
  5. LANSOPRAZOLE [Concomitant]
     Dosage: 15MG PER DAY
     Route: 048
  6. MOTILIUM [Concomitant]
     Dosage: 10MG PER DAY
     Route: 048

REACTIONS (4)
  - HAEMATEMESIS [None]
  - HAEMOGLOBIN DECREASED [None]
  - OESOPHAGEAL HAEMORRHAGE [None]
  - OFF LABEL USE [None]
